FAERS Safety Report 9067376 (Version 7)
Quarter: 2013Q4

REPORT INFORMATION
  Report Type: Spontaneous
  Country: US (occurrence: US)
  Receive Date: 20130206
  Receipt Date: 20131223
  Transmission Date: 20140711
  Serious: Yes (Hospitalization, Other)
  Sender: FDA-Public Use
  Company Number: US-009507513-1302USA000888

PATIENT
  Sex: Female
  Weight: 107.94 kg

DRUGS (2)
  1. NUVARING [Suspect]
     Indication: CONTRACEPTION
     Dosage: 0.12-0.015 MG/24 HR INSERT FOR 21 DAYS
     Route: 067
     Dates: start: 2005, end: 20090224
  2. NUVARING [Suspect]
     Indication: HORMONE LEVEL ABNORMAL

REACTIONS (20)
  - Pleural effusion [Unknown]
  - Pulmonary embolism [Unknown]
  - Deep vein thrombosis [Unknown]
  - Off label use [Unknown]
  - Bartholin^s cyst [Unknown]
  - Bartholin^s cyst [Unknown]
  - Irritable bowel syndrome [Unknown]
  - Cardiomegaly [Unknown]
  - Nausea [Unknown]
  - Atelectasis [Unknown]
  - Pain in extremity [Recovering/Resolving]
  - Abortion induced [Unknown]
  - Exposure during pregnancy [Unknown]
  - Ligament sprain [Unknown]
  - Urinary tract infection [Unknown]
  - Amenorrhoea [Unknown]
  - Tendonitis [Unknown]
  - Foot deformity [Unknown]
  - Metrorrhagia [Unknown]
  - Coagulopathy [Unknown]
